FAERS Safety Report 9103263 (Version 1)
Quarter: 2013Q1

REPORT INFORMATION
  Report Type: Spontaneous
  Country: US (occurrence: US)
  Receive Date: 20130219
  Receipt Date: 20130219
  Transmission Date: 20140127
  Serious: No
  Sender: FDA-Public Use
  Company Number: US-PFIZER INC-2012300604

PATIENT
  Sex: Female

DRUGS (1)
  1. TORISEL [Suspect]
     Indication: RENAL CELL CARCINOMA
     Dosage: 25 MG, WEEKLY (Q WEEK)
     Route: 042

REACTIONS (3)
  - Occupational exposure to product [Unknown]
  - Product packaging issue [Unknown]
  - Chemical injury [Recovered/Resolved]
